FAERS Safety Report 21402848 (Version 1)
Quarter: 2022Q4

REPORT INFORMATION
  Report Type: Report from Study
  Country: FR (occurrence: None)
  Receive Date: 20221003
  Receipt Date: 20221003
  Transmission Date: 20230113
  Serious: Yes (Death)
  Sender: FDA-Public Use
  Company Number: 2022A186505

PATIENT
  Age: 925 Month
  Sex: Male
  Weight: 80 kg

DRUGS (3)
  1. EVUSHELD [Suspect]
     Active Substance: CILGAVIMAB\TIXAGEVIMAB
     Indication: COVID-19 prophylaxis
     Dosage: 300.0MG UNKNOWN
     Route: 030
     Dates: start: 20220128
  2. SOTROVIMAB [Concomitant]
     Active Substance: SOTROVIMAB
  3. LINEZOLID [Concomitant]
     Active Substance: LINEZOLID

REACTIONS (3)
  - Condition aggravated [Fatal]
  - COVID-19 [Unknown]
  - Product use issue [Unknown]

NARRATIVE: CASE EVENT DATE: 20220128
